FAERS Safety Report 23986525 (Version 2)
Quarter: 2024Q3

REPORT INFORMATION
  Report Type: Spontaneous
  Country: IT (occurrence: IT)
  Receive Date: 20240618
  Receipt Date: 20240722
  Transmission Date: 20241016
  Serious: Yes (Death, Other)
  Sender: ALNYLAM PHARMACEUTICALS
  Company Number: IT-ALNYLAM PHARMACEUTICALS, INC.-ALN-2024-003410

PATIENT

DRUGS (3)
  1. ONPATTRO [Suspect]
     Active Substance: PATISIRAN SODIUM
     Indication: Hereditary neuropathic amyloidosis
     Dosage: 20 MILLIGRAM, Q3W (20 MG/IV (BASED ON THE PATIENT^S WEIGHT)
     Route: 042
     Dates: start: 202010, end: 202010
  2. ONPATTRO [Suspect]
     Active Substance: PATISIRAN SODIUM
     Dosage: UNK
     Route: 065
     Dates: start: 20240227, end: 20240227
  3. CEFTRIAXONE [Concomitant]
     Active Substance: CEFTRIAXONE\CEFTRIAXONE SODIUM
     Indication: Product used for unknown indication
     Dosage: UNK
     Route: 065
     Dates: start: 20240228

REACTIONS (8)
  - Sepsis [Fatal]
  - Multiple organ dysfunction syndrome [Fatal]
  - Appendicectomy [Unknown]
  - Hyperpyrexia [Unknown]
  - Appendicitis [Unknown]
  - Ascites [Unknown]
  - Dyspnoea [Unknown]
  - Pleural effusion [Unknown]

NARRATIVE: CASE EVENT DATE: 20240227
